FAERS Safety Report 8185917-7 (Version None)
Quarter: 2012Q1

REPORT INFORMATION
  Report Type: 
  Country: None (occurrence: None)
  Receive Date: 20120305
  Receipt Date: 20120223
  Transmission Date: 20120608
  Serious: Yes (Hospitalization)
  Sender: FDA-Public Use
  Company Number: SE-ASTRAZENECA-2012SE13114

PATIENT
  Age: 66 Year
  Sex: Male
  Weight: 83 kg

DRUGS (7)
  1. METOPROLOL SUCCINATE [Concomitant]
  2. ENALAPRIL MALEATE [Concomitant]
  3. BRILIQUE [Suspect]
     Indication: THROMBOSIS PROPHYLAXIS
     Route: 048
     Dates: start: 20120209, end: 20120219
  4. ASPIRIN [Concomitant]
  5. TRAMADOL HCL [Concomitant]
  6. OMEPRAZOLE [Concomitant]
  7. ACETAMINOPHEN [Concomitant]

REACTIONS (3)
  - JOINT SWELLING [None]
  - HYPERURICAEMIA [None]
  - PAIN IN EXTREMITY [None]
